FAERS Safety Report 15632073 (Version 1)
Quarter: 2018Q4

REPORT INFORMATION
  Report Type: Report from Study
  Country: NL (occurrence: NL)
  Receive Date: 20181119
  Receipt Date: 20181119
  Transmission Date: 20190205
  Serious: Yes (Other)
  Sender: FDA-Public Use
  Company Number: NL-IPSEN BIOPHARMACEUTICALS, INC.-2018-17257

PATIENT
  Age: 79 Year
  Sex: Female

DRUGS (1)
  1. SOMATULINE AUTOSOLUTION 120MG [Suspect]
     Active Substance: LANREOTIDE ACETATE
     Indication: NEUROENDOCRINE TUMOUR
     Dosage: 120 MILLIGRAM
     Route: 058
     Dates: start: 20180727

REACTIONS (3)
  - Incorrect product administration duration [Unknown]
  - Coma [Unknown]
  - Terminal state [Unknown]

NARRATIVE: CASE EVENT DATE: 20181107
